FAERS Safety Report 6529078-6 (Version None)
Quarter: 2010Q1

REPORT INFORMATION
  Report Type: 
  Country: None (occurrence: None)
  Receive Date: 20100106
  Receipt Date: 20091229
  Transmission Date: 20100710
  Serious: Yes (Other)
  Sender: FDA-Public Use
  Company Number: US-ASTRAZENECA-2007UW01701

PATIENT
  Age: 39 Year
  Sex: Female
  Weight: 62.6 kg

DRUGS (16)
  1. SEROQUEL [Suspect]
     Indication: DEPRESSION
     Dosage: 200 MG TO 900 MG
     Route: 048
     Dates: start: 19990525, end: 20060628
  2. SEROQUEL [Suspect]
     Dosage: 600 TO 900 MG
     Route: 048
     Dates: start: 19991001, end: 20060601
  3. HALOPERIDOL [Concomitant]
     Dates: start: 20060201
  4. HYDROXYZINE [Concomitant]
     Dosage: 25 MG TO 50 MG
     Dates: start: 20010126, end: 20060518
  5. TEGRETOL [Concomitant]
     Dates: start: 20061101
  6. LITHIUM CARBONATE [Concomitant]
     Dates: start: 19990101
  7. PROPRANOLOL [Concomitant]
  8. RANITIDINE [Concomitant]
  9. KLONOPIN [Concomitant]
     Dates: start: 19920101, end: 19980101
  10. KLONOPIN [Concomitant]
     Dates: start: 19980812
  11. KLONOPIN [Concomitant]
     Dates: start: 20070401
  12. PAXIL [Concomitant]
     Dosage: 30 MG TO 60 MG
     Dates: start: 19960525
  13. PAXIL [Concomitant]
  14. BUSPAR [Concomitant]
     Dosage: 40 MG TO 45 MG
     Route: 048
     Dates: start: 19960525
  15. BUSPAR [Concomitant]
     Dates: start: 20011118, end: 20060518
  16. ZYPREXA [Concomitant]
     Dosage: 7.5 MG TO 10 MG
     Dates: start: 19980514

REACTIONS (10)
  - ABDOMINAL DISTENSION [None]
  - AGORAPHOBIA [None]
  - BLOOD TRIGLYCERIDES INCREASED [None]
  - DIABETIC KETOACIDOSIS [None]
  - GASTRITIS [None]
  - PANCREATITIS ACUTE [None]
  - RENAL DISORDER [None]
  - SKIN DISCOLOURATION [None]
  - TYPE 2 DIABETES MELLITUS [None]
  - WEIGHT INCREASED [None]
